FAERS Safety Report 20434490 (Version 2)
Quarter: 2022Q2

REPORT INFORMATION
  Report Type: Spontaneous
  Country: BE (occurrence: BE)
  Receive Date: 20220206
  Receipt Date: 20220411
  Transmission Date: 20220721
  Serious: Yes (Other)
  Sender: FDA-Public Use
  Company Number: BE-NOVARTISPH-NVSC2021BE064773

PATIENT
  Age: 39 Year
  Sex: Female
  Weight: 49 kg

DRUGS (3)
  1. GILENYA [Suspect]
     Active Substance: FINGOLIMOD HYDROCHLORIDE
     Indication: Multiple sclerosis
     Dosage: 0.5 MG, QD
     Route: 065
     Dates: start: 201707, end: 202009
  2. TYSABRI [Suspect]
     Active Substance: NATALIZUMAB
     Indication: Rebound effect
     Dosage: 300 MG, Q4W (3 INFUSIONS)
     Route: 065
     Dates: start: 20201215
  3. TYSABRI [Suspect]
     Active Substance: NATALIZUMAB
     Indication: Multiple sclerosis
     Dosage: UNK
     Route: 065
     Dates: start: 202101, end: 202102

REACTIONS (4)
  - Progressive multifocal leukoencephalopathy [Recovered/Resolved]
  - Memory impairment [Unknown]
  - Rebound effect [Unknown]
  - Malaise [Unknown]

NARRATIVE: CASE EVENT DATE: 20201201
